FAERS Safety Report 8002723-4 (Version None)
Quarter: 2011Q4

REPORT INFORMATION
  Report Type: 
  Country: None (occurrence: None)
  Receive Date: 20111222
  Receipt Date: 20111214
  Transmission Date: 20120403
  Serious: Yes (Other)
  Sender: FDA-Public Use
  Company Number: JP-ELI_LILLY_AND_COMPANY-JP201111005660

PATIENT
  Sex: Male

DRUGS (4)
  1. GEMZAR [Suspect]
     Indication: BILE DUCT CANCER
     Route: 042
  2. GEMZAR [Suspect]
     Dosage: UNK
     Route: 042
     Dates: start: 20111201
  3. TS 1 [Concomitant]
     Indication: BILE DUCT CANCER
     Route: 048
  4. TS 1 [Concomitant]
     Dosage: UNK
     Route: 048
     Dates: start: 20111201

REACTIONS (2)
  - HEPATIC STEATOSIS [None]
  - HEPATECTOMY [None]
